FAERS Safety Report 26057952 (Version 1)
Quarter: 2025Q4

REPORT INFORMATION
  Report Type: Spontaneous
  Country: AU (occurrence: AU)
  Receive Date: 20251118
  Receipt Date: 20251118
  Transmission Date: 20260118
  Serious: Yes (Death, Other)
  Sender: RECORDATI
  Company Number: AU-RECORDATI RARE DISEASE INC.-2025008182

PATIENT

DRUGS (2)
  1. SYLVANT [Suspect]
     Active Substance: SILTUXIMAB
     Indication: Castleman^s disease
     Dosage: 1ST DOSE (RECEIVED TOTAL 4 DOSES OF SILTUXIMAB)
     Dates: start: 20250814, end: 2025
  2. SULFAMETHOXAZOLE AND TRIMETHOPRIM [Suspect]
     Active Substance: SULFAMETHOXAZOLE\TRIMETHOPRIM
     Indication: Product used for unknown indication

REACTIONS (5)
  - Toxic epidermal necrolysis [Fatal]
  - Generalised oedema [Not Recovered/Not Resolved]
  - C-reactive protein abnormal [Recovered/Resolved]
  - Haemoglobin abnormal [Recovered/Resolved]
  - Thrombocytopenia [Not Recovered/Not Resolved]

NARRATIVE: CASE EVENT DATE: 20250101
